FAERS Safety Report 23398693 (Version 1)
Quarter: 2024Q1

REPORT INFORMATION
  Report Type: Spontaneous
  Country: US (occurrence: US)
  Receive Date: 20240112
  Receipt Date: 20240112
  Transmission Date: 20240410
  Serious: Yes (Life-Threatening, Hospitalization, Other)
  Sender: FDA-Public Use
  Company Number: US-SANDOZ-SDZ2024US001317

PATIENT

DRUGS (23)
  1. ALPELISIB [Suspect]
     Active Substance: ALPELISIB
     Indication: HER2 positive bladder cancer
     Dosage: 300 MG, QD
     Route: 048
     Dates: start: 20231215, end: 20231222
  2. FULVESTRANT [Suspect]
     Active Substance: FULVESTRANT
     Indication: HER2 positive breast cancer
     Dosage: 500 MG
     Route: 065
     Dates: start: 20231215
  3. TUCATINIB [Suspect]
     Active Substance: TUCATINIB
     Indication: HER2 positive breast cancer
     Dosage: 300 MG, BID
     Route: 048
     Dates: start: 20231215, end: 20231222
  4. AMBIEN [Concomitant]
     Active Substance: ZOLPIDEM TARTRATE
     Indication: Sleep disorder
     Dosage: 5 MG, PRN
     Route: 048
     Dates: start: 20231115
  5. ASPIRIN [Concomitant]
     Active Substance: ASPIRIN
     Indication: Product used for unknown indication
     Dosage: 81 MG, QD
     Route: 048
     Dates: start: 2018
  6. CALCIUM\VITAMIN D [Concomitant]
     Active Substance: CALCIUM\VITAMIN D
     Indication: Supplementation therapy
     Dosage: 600MG/500IU
     Route: 065
     Dates: start: 2012
  7. CANNABIDIOL\HERBALS [Concomitant]
     Active Substance: CANNABIDIOL\HERBALS
     Indication: Sleep disorder
     Dosage: UNK, PRN
     Route: 048
     Dates: start: 2018
  8. COMPAZINE [Concomitant]
     Active Substance: PROCHLORPERAZINE MALEATE
     Indication: Nausea
     Dosage: 10 MG, PRN
     Route: 048
     Dates: start: 20231218
  9. EMLA [Concomitant]
     Active Substance: LIDOCAINE\PRILOCAINE
     Indication: Central venous catheterisation
     Dosage: UNK, PRN
     Route: 065
     Dates: start: 20231110
  10. ESTRADIOL [Concomitant]
     Active Substance: ESTRADIOL
     Indication: Vulvovaginal dryness
     Dosage: 10 UG
     Route: 065
     Dates: start: 20231206
  11. ESTRADIOL [Concomitant]
     Active Substance: ESTRADIOL
     Indication: Urinary tract infection
  12. IMODIUM [Concomitant]
     Active Substance: LOPERAMIDE HYDROCHLORIDE
     Indication: Diarrhoea
     Dosage: 2 MG, PRN
     Route: 048
     Dates: start: 20231122
  13. LEVOCETIRIZINE [Concomitant]
     Active Substance: LEVOCETIRIZINE
     Indication: Hypersensitivity
     Dosage: 5 MG, QD
     Route: 048
     Dates: start: 1993
  14. LEVOTHYROXINE [Concomitant]
     Active Substance: LEVOTHYROXINE
     Indication: Hypothyroidism
     Dosage: 75 UG, QD
     Route: 048
     Dates: start: 1993
  15. LOMOTIL [Concomitant]
     Active Substance: ATROPINE SULFATE\DIPHENOXYLATE HYDROCHLORIDE
     Indication: Diarrhoea
     Dosage: 2.5 MG, PRN
     Route: 065
     Dates: start: 20231218
  16. MAGNESIUM [Concomitant]
     Active Substance: MAGNESIUM
     Indication: Mineral supplementation
     Dosage: 400 MG, QD
     Route: 048
     Dates: start: 20231120
  17. METFORMIN [Concomitant]
     Active Substance: METFORMIN HYDROCHLORIDE
     Indication: Diabetes mellitus
     Dosage: 500 MG, QD
     Route: 048
     Dates: start: 20231209
  18. NORCO [Concomitant]
     Active Substance: ACETAMINOPHEN\HYDROCODONE BITARTRATE
     Indication: Pain
     Dosage: 5-325 MG, PRN (START DATE: 10-???-2023)
     Route: 048
     Dates: start: 2023
  19. POTASSIUM [Concomitant]
     Active Substance: POTASSIUM
     Indication: Mineral supplementation
     Dosage: 20 MEQ, BID
     Route: 048
     Dates: start: 20231122
  20. PRILOSEC [Concomitant]
     Active Substance: OMEPRAZOLE MAGNESIUM
     Indication: Gastrooesophageal reflux disease
     Dosage: 20 MG, QD
     Route: 048
     Dates: start: 2013
  21. PROBIOTICS NOS [Concomitant]
     Active Substance: PROBIOTICS NOS
     Indication: Gastrointestinal disorder
     Dosage: UNK, QD
     Route: 048
     Dates: start: 2011
  22. SENNA PLUS [Concomitant]
     Active Substance: DOCUSATE SODIUM\SENNOSIDES\SENNOSIDES A AND B
     Indication: Constipation
     Dosage: 8.6-50 MG, PRN
     Route: 048
     Dates: start: 20230901
  23. ZOFRAN [Concomitant]
     Active Substance: ONDANSETRON HYDROCHLORIDE
     Indication: Nausea
     Dosage: 8 MG, PRN
     Route: 048
     Dates: start: 20231120

REACTIONS (5)
  - Hypokalaemia [Not Recovered/Not Resolved]
  - Blood creatinine increased [Not Recovered/Not Resolved]
  - Acute kidney injury [Not Recovered/Not Resolved]
  - Diarrhoea [Unknown]
  - Rash [Unknown]

NARRATIVE: CASE EVENT DATE: 20231224
